FAERS Safety Report 9484375 (Version 1)
Quarter: 2013Q3

REPORT INFORMATION
  Report Type: Spontaneous
  Country: US (occurrence: US)
  Receive Date: 20130828
  Receipt Date: 20130828
  Transmission Date: 20140515
  Serious: Yes (Other)
  Sender: FDA-Public Use
  Company Number: US-AMGEN-KDL411063

PATIENT
  Age: 62 Year
  Sex: Female

DRUGS (1)
  1. ENBREL [Suspect]
     Indication: RHEUMATOID ARTHRITIS
     Dosage: 50 MG, QWK
     Route: 058
     Dates: start: 20030101

REACTIONS (12)
  - Macular degeneration [Unknown]
  - Musculoskeletal stiffness [Unknown]
  - Vertigo [Unknown]
  - Contusion [Unknown]
  - Meniscus injury [Recovered/Resolved]
  - Cataract [Unknown]
  - Injury [Unknown]
  - Pneumonia bacterial [Unknown]
  - Bronchitis [Unknown]
  - Asthma [Unknown]
  - Fatigue [Unknown]
  - Drug ineffective [Unknown]
